FAERS Safety Report 15329102 (Version 6)
Quarter: 2019Q1

REPORT INFORMATION
  Report Type: Spontaneous
  Country: US (occurrence: US)
  Receive Date: 20180829
  Receipt Date: 20190314
  Transmission Date: 20190417
  Serious: No
  Sender: FDA-Public Use
  Company Number: US-BIOGEN-2018BI00625973

PATIENT
  Sex: Female

DRUGS (2)
  1. TECFIDERA [Suspect]
     Active Substance: DIMETHYL FUMARATE
     Route: 065
     Dates: start: 20190227
  2. TECFIDERA [Suspect]
     Active Substance: DIMETHYL FUMARATE
     Indication: MULTIPLE SCLEROSIS
     Dosage: MAINTENANCE DOSE
     Route: 050

REACTIONS (7)
  - Dysstasia [Unknown]
  - Gait inability [Not Recovered/Not Resolved]
  - Musculoskeletal disorder [Unknown]
  - Dizziness [Unknown]
  - Gait disturbance [Unknown]
  - Somnolence [Unknown]
  - Fall [Recovered/Resolved]
